FAERS Safety Report 4547066-6 (Version None)
Quarter: 2005Q1

REPORT INFORMATION
  Report Type: 
  Country: None (occurrence: None)
  Receive Date: 20050107
  Receipt Date: 20041228
  Transmission Date: 20050727
  Serious: Yes (Other)
  Sender: FDA-Public Use
  Company Number: US-JNJFOC-20040201728

PATIENT
  Sex: Male
  Weight: 113.4 kg

DRUGS (3)
  1. REMICADE [Suspect]
     Indication: CROHN'S DISEASE
     Dosage: LAST INFUSION
     Route: 042
  2. 6MP [Concomitant]
     Indication: CROHN'S DISEASE
  3. NEXIUM [Concomitant]

REACTIONS (2)
  - PSORIASIS [None]
  - SEBORRHOEA [None]
